FAERS Safety Report 8489159-7 (Version None)
Quarter: 2012Q3

REPORT INFORMATION
  Report Type: 
  Country: None (occurrence: None)
  Receive Date: 20120705
  Receipt Date: 20120625
  Transmission Date: 20120928
  Serious: Yes (Other)
  Sender: FDA-Public Use
  Company Number: FR-ASTRAZENECA-2012SE04175

PATIENT
  Age: 15675 Day
  Sex: Male

DRUGS (5)
  1. VIRAMUNE [Suspect]
     Indication: HIV INFECTION
     Route: 048
     Dates: start: 20111201, end: 20111223
  2. KARDEGIC [Concomitant]
  3. TRUVADA [Concomitant]
     Indication: HIV INFECTION
     Dosage: 200 MG / 245 MG
     Route: 048
     Dates: start: 20090401, end: 20111223
  4. DILTIAZEM HCL [Concomitant]
  5. CRESTOR [Suspect]
     Indication: CARDIOVASCULAR EVENT PROPHYLAXIS
     Route: 048
     Dates: start: 20090301, end: 20111223

REACTIONS (2)
  - RENAL COLIC [None]
  - MIXED LIVER INJURY [None]
